FAERS Safety Report 12995210 (Version 3)
Quarter: 2025Q4

REPORT INFORMATION
  Report Type: Spontaneous
  Country: US (occurrence: US)
  Receive Date: 20161202
  Receipt Date: 20251105
  Transmission Date: 20260118
  Serious: Yes (Death, Life-Threatening, Hospitalization, Other)
  Sender: SANOFI AVENTIS
  Company Number: US-SA-2016SA215034

PATIENT
  Age: 51 Year
  Sex: Male

DRUGS (16)
  1. METHYLPREDNISOLONE [Suspect]
     Active Substance: METHYLPREDNISOLONE
     Indication: Graft versus host disease in skin
     Dosage: 2 MG/KG,QD
     Route: 048
  2. METHYLPREDNISOLONE [Suspect]
     Active Substance: METHYLPREDNISOLONE
     Indication: Graft versus host disease in gastrointestinal tract
  3. VALACYCLOVIR HYDROCHLORIDE [Suspect]
     Active Substance: VALACYCLOVIR HYDROCHLORIDE
     Indication: Prophylaxis
     Dosage: 500 MG, BID
     Route: 048
  4. FLUDARABINE PHOSPHATE [Suspect]
     Active Substance: FLUDARABINE PHOSPHATE
     Indication: Myelodysplastic syndrome
     Dosage: UNK
  5. CLOFARABINE [Suspect]
     Active Substance: CLOFARABINE
     Indication: Myelodysplastic syndrome
     Dosage: UNK
  6. ANTI-THYMOCYTE GLOBULIN (RABBIT) NOS [Suspect]
     Active Substance: LAPINE T-LYMPHOCYTE IMMUNE GLOBULIN
     Indication: Myelodysplastic syndrome
     Dosage: UNK
  7. BUSULFAN [Suspect]
     Active Substance: BUSULFAN
     Indication: Myelodysplastic syndrome
     Dosage: UNK
  8. PENTOSTATIN [Suspect]
     Active Substance: PENTOSTATIN
     Indication: Graft versus host disease in gastrointestinal tract
     Dosage: UNK
     Route: 042
  9. PENTOSTATIN [Suspect]
     Active Substance: PENTOSTATIN
     Indication: Graft versus host disease in skin
  10. POSACONAZOLE [Concomitant]
     Active Substance: POSACONAZOLE
     Indication: Graft versus host disease in gastrointestinal tract
     Dosage: UNK
  11. CEFPODOXIME [Concomitant]
     Active Substance: CEFPODOXIME
     Indication: Prophylaxis
     Dosage: UNK
  12. SULFAMETHOXAZOLE\TRIMETHOPRIM [Concomitant]
     Active Substance: SULFAMETHOXAZOLE\TRIMETHOPRIM
     Indication: Graft versus host disease in gastrointestinal tract
     Dosage: UNK
  13. VANCOMYCIN [Concomitant]
     Active Substance: VANCOMYCIN
     Indication: Liver abscess
     Dosage: UNK
     Route: 042
  14. MEROPENEM [Concomitant]
     Active Substance: MEROPENEM
     Indication: Liver abscess
     Dosage: UNK
  15. AMPHOTERICIN B [Concomitant]
     Active Substance: AMPHOTERICIN B
     Indication: Evidence based treatment
     Dosage: UNK
     Route: 042
  16. CIDOFOVIR [Concomitant]
     Active Substance: CIDOFOVIR
     Indication: Evidence based treatment
     Dosage: 5 MG/KG
     Route: 042

REACTIONS (19)
  - Herpes simplex [Fatal]
  - Anal ulcer [Fatal]
  - Pain [Fatal]
  - Erythema [Fatal]
  - Pyrexia [Fatal]
  - Abdominal pain [Fatal]
  - Abdominal tenderness [Fatal]
  - Drug resistance [Fatal]
  - Acute hepatic failure [Fatal]
  - Jaundice [Fatal]
  - Hepatic necrosis [Fatal]
  - Hepatic lesion [Fatal]
  - Multiple organ dysfunction syndrome [Fatal]
  - Hypotension [Fatal]
  - Renal impairment [Fatal]
  - Encephalopathy [Fatal]
  - Mental status changes [Fatal]
  - Coagulopathy [Fatal]
  - Gastrointestinal haemorrhage [Fatal]
